FAERS Safety Report 5856084-7 (Version None)
Quarter: 2008Q3

REPORT INFORMATION
  Report Type: 
  Country: None (occurrence: None)
  Receive Date: 20080818
  Receipt Date: 20070731
  Transmission Date: 20090109
  Serious: Yes (Hospitalization)
  Sender: FDA-Public Use
  Company Number: 07H-163-0312971-00

PATIENT
  Sex: Male
  Weight: 97 kg

DRUGS (5)
  1. VANCOMYCIN HCL [Suspect]
     Indication: INFECTION
     Dosage: 1 GM, ONCE, RIGHT INTRAJUGULAR DIALYSIS PORT
     Dates: start: 20070726, end: 20070726
  2. HEPARIN [Concomitant]
  3. EPOGEN [Concomitant]
  4. ZEMPLAR [Concomitant]
  5. FERRLECIT (FERROUS SUCCINATE) [Concomitant]

REACTIONS (2)
  - HYPERSENSITIVITY [None]
  - HYPOTENSION [None]
